FAERS Safety Report 6911986-5 (Version None)
Quarter: 2010Q3

REPORT INFORMATION
  Report Type: 
  Country: None (occurrence: None)
  Receive Date: 20100806
  Receipt Date: 20080707
  Transmission Date: 20110219
  Serious: No
  Sender: FDA-Public Use
  Company Number: US-PFIZER INC-2006050780

PATIENT
  Sex: Female
  Weight: 67.81 kg

DRUGS (11)
  1. DETROL LA [Suspect]
     Indication: POLLAKIURIA
     Route: 065
     Dates: start: 20050101
  2. UNITHROID [Suspect]
     Indication: THYROID DISORDER
     Route: 065
  3. SULINDAC [Suspect]
     Indication: ARTHRITIS
     Route: 065
  4. LOTREL [Suspect]
     Indication: HYPERTENSION
     Route: 065
  5. PRAVACHOL [Suspect]
     Indication: BLOOD CHOLESTEROL INCREASED
     Route: 065
  6. DOXAZOSIN [Suspect]
     Indication: HYPERTENSION
     Route: 065
  7. FOLIC ACID [Concomitant]
     Route: 065
  8. ASCORBIC ACID [Concomitant]
     Route: 065
  9. VITAMIN E [Concomitant]
     Route: 065
  10. MULTI-VITAMINS [Concomitant]
     Route: 065
  11. CALTRATE [Concomitant]
     Route: 065

REACTIONS (4)
  - CONSTIPATION [None]
  - DRUG INEFFECTIVE [None]
  - NOCTURIA [None]
  - POLLAKIURIA [None]
